FAERS Safety Report 8998947 (Version 3)
Quarter: 2013Q1

REPORT INFORMATION
  Report Type: Spontaneous
  Country: US (occurrence: US)
  Receive Date: 20130103
  Receipt Date: 20130222
  Transmission Date: 20140127
  Serious: No
  Sender: FDA-Public Use
  Company Number: US-PFIZER INC-2012331587

PATIENT
  Age: 74 Year
  Sex: Female
  Weight: 58.96 kg

DRUGS (2)
  1. PREMPRO [Suspect]
     Indication: OESTROGEN REPLACEMENT THERAPY
     Dosage: (ESTROGENS CONJUGATED 0.45 MG/ MEDROXYPROGESTERONE ACETATE 1.5 MG), 1X/DAY
     Route: 048
     Dates: start: 2004
  2. PREMPRO [Suspect]
     Indication: BLOOD OESTROGEN DECREASED

REACTIONS (2)
  - Product quality issue [Unknown]
  - Drug ineffective [Not Recovered/Not Resolved]
